FAERS Safety Report 25361487 (Version 2)
Quarter: 2025Q2

REPORT INFORMATION
  Report Type: Report from Study
  Country: US (occurrence: US)
  Receive Date: 20250527
  Receipt Date: 20250609
  Transmission Date: 20250716
  Serious: No
  Sender: ACADIA PHARMACEUTICALS
  Company Number: US-ACADIA PHARMACEUTICALS INC.-ACA-2025-PIM-006083

PATIENT
  Age: 84 Year
  Sex: Male

DRUGS (15)
  1. NUPLAZID [Suspect]
     Active Substance: PIMAVANSERIN TARTRATE
     Indication: Parkinson^s disease psychosis
     Dosage: 34 MILLIGRAM, QD
     Route: 048
     Dates: start: 20250422
  2. AMANTADINE [Concomitant]
     Active Substance: AMANTADINE
  3. AMLODIPINE [Concomitant]
     Active Substance: AMLODIPINE BESYLATE
  4. BACLOFEN [Concomitant]
     Active Substance: BACLOFEN
  5. CARBIDOPA AND LEVODOPA [Concomitant]
     Active Substance: CARBIDOPA\LEVODOPA
  6. CETIRIZINE [Concomitant]
     Active Substance: CETIRIZINE HYDROCHLORIDE
  7. ENTACAPONE [Concomitant]
     Active Substance: ENTACAPONE
  8. FAMOTIDINE [Concomitant]
     Active Substance: FAMOTIDINE
  9. IBUPROFEN [Concomitant]
     Active Substance: IBUPROFEN
  10. LOSARTAN [Concomitant]
     Active Substance: LOSARTAN
  11. TADALAFIL [Concomitant]
     Active Substance: TADALAFIL
  12. TRAZODONE [Concomitant]
     Active Substance: TRAZODONE HYDROCHLORIDE
  13. TRIAMCINOLONE [Concomitant]
     Active Substance: TRIAMCINOLONE
  14. CHOLECALCIFEROL [Concomitant]
     Active Substance: CHOLECALCIFEROL
  15. LINZESS [Concomitant]
     Active Substance: LINACLOTIDE

REACTIONS (1)
  - Aggression [Not Recovered/Not Resolved]

NARRATIVE: CASE EVENT DATE: 20250520
